FAERS Safety Report 25358274 (Version 1)
Quarter: 2025Q2

REPORT INFORMATION
  Report Type: Spontaneous
  Country: US (occurrence: US)
  Receive Date: 20250526
  Receipt Date: 20250526
  Transmission Date: 20250716
  Serious: No
  Sender: GLAND PHARMA LTD
  Company Number: US-GLANDPHARMA-US-2025GLNSPO01240

PATIENT

DRUGS (3)
  1. FLUOROURACIL [Suspect]
     Active Substance: FLUOROURACIL
     Indication: Oesophageal carcinoma
     Route: 065
  2. IRINOTECAN HYDROCHLORIDE [Suspect]
     Active Substance: IRINOTECAN HYDROCHLORIDE
     Indication: Oesophageal carcinoma
     Route: 065
  3. RAMUCIRUMAB [Concomitant]
     Active Substance: RAMUCIRUMAB
     Route: 065

REACTIONS (4)
  - Alopecia [Unknown]
  - Diarrhoea [Unknown]
  - Rash [Unknown]
  - Product use in unapproved indication [Unknown]
